FAERS Safety Report 19615673 (Version 1)
Quarter: 2021Q3

REPORT INFORMATION
  Report Type: Spontaneous
  Country: US (occurrence: US)
  Receive Date: 20210727
  Receipt Date: 20210727
  Transmission Date: 20211014
  Serious: Yes (Other)
  Sender: FDA-Public Use
  Company Number: US-PFIZER INC-2021907862

PATIENT
  Age: 32 Year
  Sex: Male

DRUGS (2)
  1. BUSPAR [Concomitant]
     Active Substance: BUSPIRONE HYDROCHLORIDE
     Indication: OBSESSIVE-COMPULSIVE DISORDER
     Dosage: 15 MG, 2X/DAY(15MG TWICE DAILY BY MOUTH FOR ABOUT THREE WEEKS)
     Route: 048
     Dates: start: 202104, end: 202105
  2. ZOLOFT [Suspect]
     Active Substance: SERTRALINE HYDROCHLORIDE
     Indication: OBSESSIVE-COMPULSIVE DISORDER
     Dosage: 175 MG, DAILY
     Route: 048
     Dates: start: 202102

REACTIONS (7)
  - Extrapyramidal disorder [Not Recovered/Not Resolved]
  - Tardive dyskinesia [Unknown]
  - Dyskinesia [Unknown]
  - Muscle twitching [Unknown]
  - Sexual dysfunction [Unknown]
  - Posture abnormal [Unknown]
  - Muscle contractions involuntary [Unknown]

NARRATIVE: CASE EVENT DATE: 202104
